FAERS Safety Report 10071946 (Version 2)
Quarter: 2014Q2

REPORT INFORMATION
  Report Type: Spontaneous
  Country: AU (occurrence: AU)
  Receive Date: 20140411
  Receipt Date: 20140411
  Transmission Date: 20141212
  Serious: Yes (Other)
  Sender: FDA-Public Use
  Company Number: AU-ROCHE-1381483

PATIENT
  Sex: 0

DRUGS (1)
  1. AVASTIN [Suspect]
     Indication: GLIOBLASTOMA MULTIFORME
     Route: 065
     Dates: start: 201312, end: 201403

REACTIONS (1)
  - Disease progression [Unknown]
